FAERS Safety Report 4894864-5 (Version None)
Quarter: 2006Q1

REPORT INFORMATION
  Report Type: 
  Country: None (occurrence: None)
  Receive Date: 20060127
  Receipt Date: 20060127
  Transmission Date: 20060701
  Serious: Yes (Hospitalization, Other)
  Sender: FDA-Public Use
  Company Number: None

PATIENT
  Sex: Female
  Weight: 44.7 kg

DRUGS (3)
  1. CETUXIMAB ERBITUX MOAB: C225 CHIMERIC MONOCLONAL ANTIBODY [Suspect]
     Indication: CERVIX CARCINOMA
     Dosage: SEE IMAGE
     Dates: start: 20051122, end: 20051207
  2. MS CONTIN [Concomitant]
  3. OXYCODONE [Concomitant]

REACTIONS (5)
  - ABDOMINAL PAIN [None]
  - ANAEMIA [None]
  - CONSTIPATION [None]
  - DISEASE PROGRESSION [None]
  - RENAL FAILURE [None]
